FAERS Safety Report 9698498 (Version 1)
Quarter: 2013Q4

REPORT INFORMATION
  Report Type: Spontaneous
  Country: US (occurrence: None)
  Receive Date: 20131030
  Receipt Date: 20131030
  Transmission Date: 20140711
  Serious: Yes (Other)
  Sender: FDA-Public Use
  Company Number: 2013038583

PATIENT
  Sex: Female

DRUGS (1)
  1. CARIMUNE [Suspect]

REACTIONS (6)
  - Haematological malignancy [None]
  - Anaphylactic reaction [None]
  - Headache [None]
  - Chills [None]
  - Blood pressure increased [None]
  - Body temperature increased [None]
